FAERS Safety Report 7953008-3 (Version None)
Quarter: 2011Q4

REPORT INFORMATION
  Report Type: 
  Country: None (occurrence: None)
  Receive Date: 20111201
  Receipt Date: 20111122
  Transmission Date: 20120403
  Serious: No
  Sender: FDA-Public Use
  Company Number: BR-ASTRAZENECA-2011SE08303

PATIENT
  Age: 68 Year
  Sex: Female
  Weight: 72 kg

DRUGS (8)
  1. OLCADIL [Concomitant]
     Route: 048
     Dates: start: 20020101
  2. SINVALIP [Concomitant]
     Indication: HYPERCHOLESTEROLAEMIA
     Route: 048
     Dates: start: 20000101, end: 20101201
  3. NEXIUM [Concomitant]
     Route: 048
  4. SYNTHROID [Concomitant]
     Indication: THYROID NEOPLASM
     Route: 048
     Dates: start: 20020101
  5. SINVASCOR [Concomitant]
     Indication: HYPERCHOLESTEROLAEMIA
     Route: 048
     Dates: start: 20101201
  6. NEXIUM [Concomitant]
     Route: 048
  7. ATACAND HCT [Suspect]
     Indication: HYPERTENSION
     Dosage: 8/12.5MG
     Route: 048
     Dates: start: 20060101
  8. METOPROLOL SUCCINATE [Suspect]
     Indication: HYPERTENSION
     Route: 048
     Dates: start: 20101201

REACTIONS (3)
  - GASTROOESOPHAGEAL SPHINCTER INSUFFICIENCY [None]
  - BLOOD PRESSURE INADEQUATELY CONTROLLED [None]
  - DYSPEPSIA [None]
